FAERS Safety Report 8457019-3 (Version None)
Quarter: 2012Q2

REPORT INFORMATION
  Report Type: 
  Country: None (occurrence: None)
  Receive Date: 20120614
  Receipt Date: 20120530
  Transmission Date: 20120825
  Serious: Yes (Hospitalization)
  Sender: FDA-Public Use
  Company Number: 1309295

PATIENT
  Age: 45 Year
  Sex: Male

DRUGS (12)
  1. (MABTHERA) [Suspect]
     Indication: LYMPHOMA
     Dosage: SEE IMAGE
     Route: 042
     Dates: start: 20101116
  2. (MABTHERA) [Suspect]
     Indication: LYMPHOMA
     Dosage: SEE IMAGE
     Route: 042
     Dates: start: 20080425, end: 20080516
  3. (MABTHERA) [Suspect]
     Indication: LYMPHOMA
     Dosage: SEE IMAGE
     Route: 042
     Dates: start: 20100506, end: 20100901
  4. CYCLOPHOSPHAMIDE [Suspect]
     Indication: LYMPHOMA
     Dosage: 107.1429 MG (600 MG, 5 IN 28 DAYS) ORAL
     Route: 048
     Dates: start: 20100506, end: 20100905
  5. PREDNISOLONE [Suspect]
     Indication: LYMPHOMA
     Dosage: 14.2857 MG (100 MG, 4 IN 28 DAYS) ORAL
     Route: 048
     Dates: start: 20100507, end: 20100905
  6. VINCRISTINE [Suspect]
     Indication: LYMPHOMA
     Dosage: 0.0714 MG (2 MG, 1 IN 28 DAYS)
     Dates: start: 20100506, end: 20100901
  7. METHYLPREDNISOLONE [Suspect]
     Indication: PREMEDICATION
     Dosage: SEE IMAGE
     Route: 042
     Dates: start: 20101116
  8. METHYLPREDNISOLONE [Suspect]
     Indication: PREMEDICATION
     Dosage: SEE IMAGE
     Route: 042
     Dates: start: 20100506, end: 20100901
  9. METHYLPREDNISOLONE [Suspect]
     Indication: PREMEDICATION
     Dosage: SEE IMAGE
     Route: 042
     Dates: start: 20080425, end: 20080516
  10. POLARAMINE [Concomitant]
  11. ACETAMINOPHEN [Concomitant]
  12. DOXORUBICIN HCL [Suspect]
     Indication: LYMPHOMA
     Dosage: 1.8571 MG (52 MG, 1 IN 28 DAYS) INTRAVENOUS (NOT OTHERWISE SPECIFIED)
     Route: 042
     Dates: start: 20100506, end: 20100901

REACTIONS (1)
  - MALIGNANT MELANOMA [None]
